FAERS Safety Report 17501590 (Version 2)
Quarter: 2020Q1

REPORT INFORMATION
  Report Type: Spontaneous
  Country: US (occurrence: US)
  Receive Date: 20200305
  Receipt Date: 20200309
  Transmission Date: 20200409
  Serious: No
  Sender: FDA-Public Use
  Company Number: US-PFIZER INC-2020096339

PATIENT
  Age: 73 Year
  Sex: Female
  Weight: 97.52 kg

DRUGS (4)
  1. GABAPENTIN. [Suspect]
     Active Substance: GABAPENTIN
     Dosage: 1 DF, 1X/DAY (1 CAPSULE BY MOUTH EVERY DAY AT BEDTIME FOR 3 DAYS)
     Dates: start: 20190227
  2. GABAPENTIN. [Suspect]
     Active Substance: GABAPENTIN
     Indication: PAIN
     Dosage: 300 MG, UNK
  3. GABAPENTIN. [Suspect]
     Active Substance: GABAPENTIN
     Dosage: 1 DF, 2X/DAY(1 CAPSULE BY MOUTH TWICE PER DAY FOR 3 DAYS)
  4. GABAPENTIN. [Suspect]
     Active Substance: GABAPENTIN
     Dosage: 1 DF, 3X/DAY (1 CAPSULE 3 TIMES PER DAY FROM THEN ON)

REACTIONS (3)
  - Off label use [Unknown]
  - Drug ineffective for unapproved indication [Unknown]
  - Somnolence [Unknown]
